FAERS Safety Report 8483484 (Version 2)
Quarter: 2014Q2

REPORT INFORMATION
  Report Type: Spontaneous
  Country: US (occurrence: US)
  Receive Date: 20120329
  Receipt Date: 20140603
  Transmission Date: 20141212
  Serious: Yes (Hospitalization)
  Sender: FDA-Public Use
  Company Number: US-GLAXOSMITHKLINE-A0753728A

PATIENT
  Age: 56 Year
  Sex: Male
  Weight: 114.5 kg

DRUGS (6)
  1. AVANDIA [Suspect]
     Indication: TYPE 2 DIABETES MELLITUS
     Dosage: 8MG PER DAY
     Route: 048
     Dates: start: 20000202, end: 20041020
  2. HCTZ [Concomitant]
  3. GLUCOTROL XL [Concomitant]
  4. GLUCOPHAGE [Concomitant]
  5. PAXIL [Concomitant]
  6. PRAVACHOL [Concomitant]

REACTIONS (3)
  - Cardiac failure congestive [Unknown]
  - Myocardial infarction [Unknown]
  - Coronary artery disease [Unknown]
